FAERS Safety Report 8157593 (Version 3)
Quarter: 2012Q4

REPORT INFORMATION
  Report Type: 
  Country: JP (occurrence: JP)
  Receive Date: 20110927
  Receipt Date: 20120926
  Transmission Date: 20130627
  Serious: Yes (Hospitalization, Other)
  Sender: FDA-Public Use
  Company Number: JP-PFIZER INC-2011223630

PATIENT
  Age: 45 Year
  Sex: Male
  Weight: 58.8 kg

DRUGS (2)
  1. VFEND [Suspect]
     Indication: INFECTION PROPHYLAXIS
     Dosage: 200 mg, 2x/day
     Route: 048
     Dates: start: 20100112
  2. BORTEZOMIB [Interacting]
     Indication: MULTIPLE MYELOMA
     Dosage: 1.3 mg/m2
     Route: 042
     Dates: start: 20100122

REACTIONS (2)
  - Drug interaction [Unknown]
  - Ileus paralytic [Recovering/Resolving]
